FAERS Safety Report 6005345-X (Version None)
Quarter: 2008Q4

REPORT INFORMATION
  Report Type: 
  Country: None (occurrence: None)
  Receive Date: 20081216
  Receipt Date: 20081201
  Transmission Date: 20090506
  Serious: Yes (Death)
  Sender: FDA-Public Use
  Company Number: AU-GENENTECH-273665

PATIENT
  Age: 69 Year
  Sex: Male

DRUGS (10)
  1. MABTHERA [Suspect]
     Indication: NON-HODGKIN'S LYMPHOMA
     Dosage: UNK
     Dates: end: 20050101
  2. DOXORUBICIN HCL [Suspect]
     Indication: NON-HODGKIN'S LYMPHOMA
     Dosage: UNK
     Dates: end: 20050101
  3. CYCLOPHOSPHAMIDE [Suspect]
     Indication: NON-HODGKIN'S LYMPHOMA
     Dosage: UNK
     Dates: end: 20050101
  4. PREDNISOLONE [Suspect]
     Indication: NON-HODGKIN'S LYMPHOMA
     Dosage: UNK
     Dates: end: 20050101
  5. VINCRISTINE [Suspect]
     Indication: NON-HODGKIN'S LYMPHOMA
     Dosage: UNK
     Dates: end: 20050101
  6. ETOPOSIDE [Suspect]
     Indication: NON-HODGKIN'S LYMPHOMA
     Dosage: UNK
  7. MITOXANTRONE [Suspect]
     Indication: NON-HODGKIN'S LYMPHOMA
  8. CANDESARTAN [Suspect]
     Indication: HYPERTENSION
  9. WARFARIN SODIUM [Suspect]
     Indication: DEEP VEIN THROMBOSIS
  10. OMEPRAZOLE [Suspect]
     Indication: DRUG USE FOR UNKNOWN INDICATION

REACTIONS (1)
  - HYPERAMMONAEMIC ENCEPHALOPATHY [None]
